FAERS Safety Report 8915397 (Version 2)
Quarter: 2012Q4

REPORT INFORMATION
  Report Type: 
  Country: PE (occurrence: PE)
  Receive Date: 20121119
  Receipt Date: 20121123
  Transmission Date: 20130627
  Serious: Yes (Death, Hospitalization)
  Sender: FDA-Public Use
  Company Number: PE-PFIZER INC-2012286681

PATIENT
  Age: 86 Year
  Sex: Female

DRUGS (1)
  1. CELEBREX [Suspect]
     Indication: ACUTE PAIN
     Dosage: UNK
     Route: 048
     Dates: start: 2010, end: 20120129

REACTIONS (2)
  - Cholelithotomy [Fatal]
  - Abdominal pain [Fatal]
